FAERS Safety Report 24613411 (Version 1)
Quarter: 2024Q4

REPORT INFORMATION
  Report Type: Spontaneous
  Country: US (occurrence: None)
  Receive Date: 20241112
  Receipt Date: 20241112
  Transmission Date: 20250115
  Serious: Yes (Other)
  Sender: Public
  Company Number: None

PATIENT
  Age: 60 Year
  Sex: Female
  Weight: 78.75 kg

DRUGS (7)
  1. TACROLIMUS [Suspect]
     Active Substance: TACROLIMUS
     Indication: Perioral dermatitis
     Dosage: OTHER QUANTITY : 1 TOPICAL;?FREQUENCY : TWICE A DAY;?
     Route: 061
     Dates: start: 20231204, end: 20240701
  2. INDERAL [Concomitant]
  3. VITAMIN D [Concomitant]
     Active Substance: VITAMIN D NOS
  4. CITRUCEL [Concomitant]
  5. Calcium Mineral Complex [Concomitant]
  6. HERBALS\TURMERIC [Concomitant]
     Active Substance: HERBALS\TURMERIC
  7. GINGER [Concomitant]
     Active Substance: GINGER

REACTIONS (2)
  - Basal cell carcinoma [None]
  - Application site reaction [None]

NARRATIVE: CASE EVENT DATE: 20241002
